FAERS Safety Report 13437308 (Version 3)
Quarter: 2019Q3

REPORT INFORMATION
  Report Type: Spontaneous
  Country: US (occurrence: US)
  Receive Date: 20170413
  Receipt Date: 20190911
  Transmission Date: 20191004
  Serious: Yes (Other)
  Sender: FDA-Public Use
  Company Number: US-ELI_LILLY_AND_COMPANY-US201704003356

PATIENT
  Sex: Male

DRUGS (4)
  1. CIALIS [Suspect]
     Active Substance: TADALAFIL
     Indication: ERECTILE DYSFUNCTION
     Dosage: 10 MG, WEEKLY (1/W)
     Route: 065
     Dates: start: 20050902, end: 20150919
  2. CIALIS [Suspect]
     Active Substance: TADALAFIL
     Dosage: 20 MG, WEEKLY (1/W)
     Route: 065
     Dates: start: 20050902, end: 20150919
  3. VIAGRA [Suspect]
     Active Substance: SILDENAFIL CITRATE
     Indication: ERECTILE DYSFUNCTION
     Dosage: UNK, UNKNOWN
     Route: 065
  4. FLOMAX RELIEF [Suspect]
     Active Substance: TAMSULOSIN HYDROCHLORIDE
     Indication: NEPHROLITHIASIS
     Dosage: 0.4 MG, BID
     Dates: start: 20150919, end: 20151030

REACTIONS (9)
  - Hepatic cirrhosis [Recovered/Resolved]
  - Insomnia [Unknown]
  - Osteoarthritis [Unknown]
  - Gastrooesophageal reflux disease [Recovered/Resolved]
  - Inguinal hernia [Recovered/Resolved]
  - Hypertension [Unknown]
  - Diverticulitis [Recovered/Resolved]
  - Abdominal hernia [Recovered/Resolved]
  - Malignant melanoma stage I [Unknown]

NARRATIVE: CASE EVENT DATE: 20100324
